FAERS Safety Report 7041156-4 (Version None)
Quarter: 2010Q4

REPORT INFORMATION
  Report Type: 
  Country: None (occurrence: None)
  Receive Date: 20101013
  Receipt Date: 20101004
  Transmission Date: 20110411
  Serious: Yes (Life-Threatening)
  Sender: FDA-Public Use
  Company Number: SE-SANOFI-AVENTIS-2010SA059532

PATIENT
  Age: 74 Year
  Sex: Female

DRUGS (1)
  1. ARAVA [Suspect]
     Indication: RHEUMATOID ARTHRITIS
     Route: 048
     Dates: start: 20050901, end: 20070824

REACTIONS (2)
  - DIARRHOEA [None]
  - DIVERTICULAR PERFORATION [None]
